FAERS Safety Report 18191823 (Version 1)
Quarter: 2020Q3

REPORT INFORMATION
  Report Type: Report from Study
  Country: BR (occurrence: BR)
  Receive Date: 20200825
  Receipt Date: 20200825
  Transmission Date: 20201103
  Serious: Yes (Other)
  Sender: FDA-Public Use
  Company Number: PHHY2019BR179680

PATIENT
  Age: 48 Year
  Sex: Male

DRUGS (4)
  1. COSENTYX [Suspect]
     Active Substance: SECUKINUMAB
     Dosage: UNK
     Route: 058
     Dates: start: 20200727
  2. COSENTYX [Suspect]
     Active Substance: SECUKINUMAB
     Dosage: 150 MG, UNK
     Route: 065
  3. ZOLPIDEM [Suspect]
     Active Substance: ZOLPIDEM TARTRATE
     Indication: SLEEP DISORDER
     Dosage: UNK, UNKNOWN
     Route: 065
  4. COSENTYX [Suspect]
     Active Substance: SECUKINUMAB
     Indication: ANKYLOSING SPONDYLITIS
     Dosage: UNK, UNKNOWN
     Route: 065
     Dates: start: 20181130

REACTIONS (14)
  - Exercise tolerance decreased [Unknown]
  - Tendon pain [Unknown]
  - Spinal pain [Unknown]
  - Spinal disorder [Unknown]
  - Movement disorder [Unknown]
  - Therapeutic response delayed [Unknown]
  - Therapeutic product effect incomplete [Unknown]
  - Ankylosing spondylitis [Unknown]
  - Gait disturbance [Recovering/Resolving]
  - Insomnia [Unknown]
  - Mass [Unknown]
  - Pain [Unknown]
  - Bursitis [Unknown]
  - Stress [Unknown]

NARRATIVE: CASE EVENT DATE: 20190726
